FAERS Safety Report 23683158 (Version 1)
Quarter: 2024Q1

REPORT INFORMATION
  Report Type: Spontaneous
  Country: US (occurrence: US)
  Receive Date: 20240328
  Receipt Date: 20240328
  Transmission Date: 20240410
  Serious: Yes (Other)
  Sender: FDA-Public Use
  Company Number: US-DRL-USA-LIT/USA/24/0004823

PATIENT
  Age: 51 Year
  Sex: Female

DRUGS (4)
  1. CYCLOPHOSPHAMIDE [Suspect]
     Active Substance: CYCLOPHOSPHAMIDE
     Indication: Interstitial lung disease
  2. TACROLIMUS [Suspect]
     Active Substance: TACROLIMUS
     Indication: Interstitial lung disease
  3. TOFACITINIB [Suspect]
     Active Substance: TOFACITINIB
     Indication: Interstitial lung disease
  4. HUMAN IMMUNOGLOBULIN G [Suspect]
     Active Substance: HUMAN IMMUNOGLOBULIN G
     Indication: Interstitial lung disease
     Route: 042

REACTIONS (2)
  - Drug ineffective [Unknown]
  - Disease progression [Unknown]
